FAERS Safety Report 8160018-2 (Version None)
Quarter: 2012Q1

REPORT INFORMATION
  Report Type: 
  Country: None (occurrence: None)
  Receive Date: 20120223
  Receipt Date: 20120131
  Transmission Date: 20120608
  Serious: Yes (Hospitalization)
  Sender: FDA-Public Use
  Company Number: FR-GLAXOSMITHKLINE-B0778621A

PATIENT
  Sex: Male
  Weight: 66 kg

DRUGS (6)
  1. ARIXTRA [Suspect]
     Indication: THROMBOPHLEBITIS
     Dosage: 2.5MG PER DAY
     Route: 058
     Dates: start: 20120116, end: 20120131
  2. DAFALGAN 500 [Concomitant]
     Dosage: 500UNIT SIX TIMES PER DAY
     Route: 048
     Dates: start: 20120126
  3. LOSARTAN POTASSIUM [Concomitant]
     Indication: HYPERTENSION
     Dosage: 50MG TWICE PER DAY
     Route: 048
     Dates: start: 20120126
  4. FERROUS FUMARATE [Concomitant]
     Dosage: 66UNIT TWICE PER DAY
     Route: 048
     Dates: start: 20120126
  5. SOTALOL HCL [Concomitant]
     Indication: HYPERTENSION
     Dosage: 80UNIT TWICE PER DAY
     Route: 048
     Dates: start: 20120126
  6. ASPIRIN [Concomitant]

REACTIONS (1)
  - PLATELET COUNT INCREASED [None]
